FAERS Safety Report 5352697-X (Version None)
Quarter: 2007Q2

REPORT INFORMATION
  Report Type: 
  Country: None (occurrence: None)
  Receive Date: 20070611
  Receipt Date: 20070531
  Transmission Date: 20071010
  Serious: Yes (Other)
  Sender: FDA-Public Use
  Company Number: GB-JNJFOC-20070600026

PATIENT
  Age: 42 Year
  Sex: Male

DRUGS (10)
  1. METRONIDAZOLE [Suspect]
     Route: 065
  2. METRONIDAZOLE [Suspect]
     Route: 065
  3. METRONIDAZOLE [Suspect]
     Route: 065
  4. METRONIDAZOLE [Suspect]
     Indication: HELICOBACTER INFECTION
     Route: 065
  5. LANSOPRAZOLE [Suspect]
     Route: 065
  6. LANSOPRAZOLE [Suspect]
     Route: 065
  7. LANSOPRAZOLE [Suspect]
     Indication: HELICOBACTER INFECTION
     Route: 065
  8. AMOXICILLIN [Suspect]
     Route: 065
  9. AMOXICILLIN [Suspect]
     Indication: HELICOBACTER INFECTION
     Route: 065
  10. CLARITHROMYCIN [Suspect]
     Indication: HELICOBACTER INFECTION
     Route: 065

REACTIONS (1)
  - MENINGITIS ASEPTIC [None]
